FAERS Safety Report 9857748 (Version 1)
Quarter: 2014Q1

REPORT INFORMATION
  Report Type: Spontaneous
  Country: US (occurrence: US)
  Receive Date: 20140131
  Receipt Date: 20140131
  Transmission Date: 20141002
  Serious: No
  Sender: FDA-Public Use
  Company Number: US-BIOGENIDEC-2014BI008261

PATIENT
  Sex: Male

DRUGS (8)
  1. TECFIDERA [Suspect]
     Indication: MULTIPLE SCLEROSIS
     Route: 048
     Dates: start: 201310
  2. AMPYRA [Concomitant]
  3. VITAMIN D [Concomitant]
  4. BACLOFEN [Concomitant]
  5. GUANFACINE HCL [Concomitant]
  6. CELEBREX [Concomitant]
  7. AMBIEN CR [Concomitant]
  8. LORTAB [Concomitant]

REACTIONS (5)
  - Depression [Unknown]
  - General symptom [Unknown]
  - Lacrimation increased [Unknown]
  - Pruritus [Unknown]
  - Erythema [Unknown]
